FAERS Safety Report 24863452 (Version 1)
Quarter: 2025Q1

REPORT INFORMATION
  Report Type: Report from Study
  Country: NL (occurrence: NL)
  Receive Date: 20250120
  Receipt Date: 20250120
  Transmission Date: 20250409
  Serious: Yes (Other)
  Sender: TEVA
  Company Number: NL-TEVA-VS-3286440

PATIENT
  Age: 38 Year
  Sex: Female

DRUGS (1)
  1. AJOVY [Suspect]
     Active Substance: FREMANEZUMAB-VFRM
     Indication: Migraine
     Dosage: 3 INJECTIONS (675 MG) ONCE PER 3 MONTHS
     Route: 058
     Dates: start: 20241004, end: 20250110

REACTIONS (3)
  - Acute macular neuroretinopathy [Unknown]
  - Therapeutic product effect incomplete [Unknown]
  - Adverse event [Unknown]

NARRATIVE: CASE EVENT DATE: 20240101
